FAERS Safety Report 6031655-6 (Version None)
Quarter: 2009Q1

REPORT INFORMATION
  Report Type: 
  Country: None (occurrence: None)
  Receive Date: 20090108
  Receipt Date: 20081230
  Transmission Date: 20090719
  Serious: Yes (Other)
  Sender: FDA-Public Use
  Company Number: US-JNJFOC-20081207172

PATIENT
  Age: 7 Year
  Sex: Male

DRUGS (2)
  1. CHILDREN'S TYLENOL PLUS COLD GRAPE [Suspect]
     Indication: NASOPHARYNGITIS
     Route: 048
  2. INSULIN PUMP [Concomitant]

REACTIONS (1)
  - BLOOD GLUCOSE INCREASED [None]
